FAERS Safety Report 4738348-3 (Version None)
Quarter: 2005Q3

REPORT INFORMATION
  Report Type: 
  Country: None (occurrence: None)
  Receive Date: 20050803
  Receipt Date: 20050718
  Transmission Date: 20060218
  Serious: Yes (Hospitalization)
  Sender: FDA-Public Use
  Company Number: 216201

PATIENT
  Age: 68 Year
  Sex: Female
  Weight: 85.9 kg

DRUGS (11)
  1. AVASTIN [Suspect]
     Indication: COLON CANCER
     Dosage: 462 MG, Q2W, INTRAVENOUS
     Route: 042
     Dates: start: 20050623
  2. OXALIPLATIN (OXALIPLATIN) [Suspect]
     Indication: COLON CANCER
     Dosage: 173 MG, Q2W, INTRAVENOUS
     Route: 042
     Dates: start: 20050623
  3. FLUOROURACIL [Suspect]
     Indication: COLON CANCER
     Dosage: 816 MG, Q2W, INTRAVENOUS
     Route: 042
     Dates: start: 20050623
  4. LEUCOVORIN CALCIUM [Suspect]
     Indication: COLON CANCER
     Dosage: 408, Q2W, INTRAVENOUS
     Route: 042
     Dates: start: 20050623
  5. PANTOLOC (PANTOPRAZOLE) [Concomitant]
  6. UNKNOWN DRUG (GENERIC COMPONENT (S) NOT KNOWN) [Concomitant]
  7. ARTHROTEC [Concomitant]
  8. ELTROXIN (LEVOTHYROXINE SODIUM) [Concomitant]
  9. FOSAMAX [Concomitant]
  10. DIOVAN [Concomitant]
  11. DOMPERIDONE (DOMPERIDONE) [Concomitant]

REACTIONS (3)
  - HYPOCALCAEMIA [None]
  - HYPOKALAEMIA [None]
  - HYPOMAGNESAEMIA [None]
